FAERS Safety Report 19642969 (Version 1)
Quarter: 2021Q3

REPORT INFORMATION
  Report Type: Spontaneous
  Country: GB (occurrence: GB)
  Receive Date: 20210731
  Receipt Date: 20210731
  Transmission Date: 20211014
  Serious: Yes (Other)
  Sender: FDA-Public Use
  Company Number: GB-TORRENT-00026148

PATIENT
  Age: 53 Year
  Sex: Female
  Weight: 61 kg

DRUGS (13)
  1. GABAPENTIN. [Concomitant]
     Active Substance: GABAPENTIN
     Indication: ILL-DEFINED DISORDER
     Dosage: TAKE ONE UP TO THREE TIMES DAILY
     Dates: start: 20201124
  2. ROSUVASTATIN. [Suspect]
     Active Substance: ROSUVASTATIN
     Indication: ILL-DEFINED DISORDER
     Dosage: UNKNOWN
     Dates: start: 20210720
  3. ATORVASTATIN [Concomitant]
     Active Substance: ATORVASTATIN
     Indication: ILL-DEFINED DISORDER
     Dosage: ONE TO BE TAKEN EACH DAY
     Dates: start: 20201116, end: 20210512
  4. MIRTAZAPINE. [Concomitant]
     Active Substance: MIRTAZAPINE
     Indication: ILL-DEFINED DISORDER
     Dosage: ONE AT NIGHT
     Dates: start: 20210514
  5. CLOPIDOGREL [Concomitant]
     Active Substance: CLOPIDOGREL BISULFATE
     Indication: ILL-DEFINED DISORDER
     Dosage: ONE TO BE TAKEN EACH DAY
     Dates: start: 20201116
  6. DESOGESTREL [Concomitant]
     Active Substance: DESOGESTREL
     Indication: ILL-DEFINED DISORDER
     Dosage: 1 TABLET DAILY AT THE SAME TIME EACH DAY
     Dates: start: 20201116
  7. HYOSCINE BUTYLBROMIDE [Concomitant]
     Active Substance: BUTYLSCOPOLAMINE BROMIDE
     Indication: ILL-DEFINED DISORDER
     Dosage: 1 TO BE TAKEN 3 OR 4 TIMES A DAY
     Dates: start: 20201116
  8. CLENIL MODULITE [Concomitant]
     Active Substance: BECLOMETHASONE DIPROPIONATE
     Indication: ILL-DEFINED DISORDER
     Dosage: INHALE 2 DOSES TWICE DAILY
     Dates: start: 20201116
  9. FEXOFENADINE [Concomitant]
     Active Substance: FEXOFENADINE HYDROCHLORIDE
     Indication: ILL-DEFINED DISORDER
     Dosage: TAKE ONE DAILY
     Dates: start: 20201116
  10. PROCTOSEDYL [Concomitant]
     Active Substance: DIBUCAINE HYDROCHLORIDE\HYDROCORTISONE
     Indication: ILL-DEFINED DISORDER
     Dosage: APPLY EACH MORNING AND NIGHT AND AFTER A BOWEL
     Dates: start: 20201116
  11. ROSUVASTATIN. [Concomitant]
     Active Substance: ROSUVASTATIN
     Indication: ILL-DEFINED DISORDER
     Dosage: TAKE ONE DAILY
     Dates: start: 20210629, end: 20210720
  12. CO?MAGALDROX [Concomitant]
     Indication: ILL-DEFINED DISORDER
     Dosage: 2X5ML SPOON AS NEEDED
     Dates: start: 20201116
  13. NORTRIPTYLINE [Concomitant]
     Active Substance: NORTRIPTYLINE
     Indication: ILL-DEFINED DISORDER
     Dosage: TAKE ONE AT NIGHT
     Dates: start: 20201116, end: 20210514

REACTIONS (1)
  - Essential tremor [Recovered/Resolved]

NARRATIVE: CASE EVENT DATE: 20210720
